FAERS Safety Report 24441413 (Version 2)
Quarter: 2024Q4

REPORT INFORMATION
  Report Type: Spontaneous
  Country: US (occurrence: US)
  Receive Date: 20241016
  Receipt Date: 20241017
  Transmission Date: 20250114
  Serious: No
  Sender: ROCHE
  Company Number: US-ROCHE-3494134

PATIENT
  Sex: Male

DRUGS (1)
  1. HEMLIBRA [Suspect]
     Active Substance: EMICIZUMAB-KXWH
     Indication: Factor VIII deficiency
     Dosage: 105 MG/0.7 ML AND 60 MG/0.4 ML
     Route: 058

REACTIONS (4)
  - Haemorrhage [Unknown]
  - Fall [Unknown]
  - Limb injury [Unknown]
  - Joint injury [Unknown]
